FAERS Safety Report 7950659-7 (Version None)
Quarter: 2011Q4

REPORT INFORMATION
  Report Type: 
  Country: None (occurrence: None)
  Receive Date: 20111201
  Receipt Date: 20111119
  Transmission Date: 20120403
  Serious: Yes (Death, Hospitalization, Other)
  Sender: FDA-Public Use
  Company Number: US-PAR PHARMACEUTICAL, INC-2011SCPR003436

PATIENT

DRUGS (6)
  1. PROPRANOLOL HYDROCHLORIDE [Suspect]
     Indication: PRODUCT USED FOR UNKNOWN INDICATION
     Dosage: OVERDOSE OF 1 MONTH SUPPLY
     Route: 065
  2. FAT EMULSIONS [Suspect]
     Indication: POISONING
     Dosage: 1.5 ML/ KG
     Route: 040
  3. FAT EMULSIONS [Suspect]
     Indication: CARDIOGENIC SHOCK
  4. INSULIN [Suspect]
     Indication: POISONING
     Dosage: 10 U/KG/HR
     Route: 051
  5. DILTIAZEM HCL [Suspect]
     Indication: PRODUCT USED FOR UNKNOWN INDICATION
     Dosage: OVERDOSE OF 1 MONTH SUPPLY
     Route: 065
  6. INSULIN [Suspect]
     Indication: CARDIOGENIC SHOCK

REACTIONS (5)
  - MULTIPLE DRUG OVERDOSE [None]
  - CARDIAC ARREST [None]
  - CARDIOGENIC SHOCK [None]
  - MULTI-ORGAN FAILURE [None]
  - DEATH [None]
